FAERS Safety Report 9281875 (Version 2)
Quarter: 2013Q3

REPORT INFORMATION
  Report Type: Report from Study
  Country: DE (occurrence: DE)
  Receive Date: 20130510
  Receipt Date: 20130716
  Transmission Date: 20140515
  Serious: Yes (Hospitalization)
  Sender: FDA-Public Use
  Company Number: DE-ROCHE-1217957

PATIENT
  Age: 82 Year
  Sex: Female
  Weight: 90 kg

DRUGS (5)
  1. BEVACIZUMAB [Suspect]
     Indication: OVARIAN CANCER
     Dosage: LAST DOSE PRIOR TO SAE:06/MAY/2013
     Route: 042
     Dates: start: 20130506
  2. CARBOPLATIN [Suspect]
     Indication: OVARIAN CANCER
     Route: 042
     Dates: start: 20130415
  3. PACLITAXEL [Suspect]
     Indication: OVARIAN CANCER
     Dosage: LAST DOSE PRIOR TO SAE:06/MAY/2013
     Route: 042
     Dates: start: 20130415
  4. FRAXIPARINE [Concomitant]
     Indication: PROPHYLAXIS
     Route: 058
     Dates: start: 20130319
  5. LOPERAMIDE [Concomitant]

REACTIONS (2)
  - Ascites [Not Recovered/Not Resolved]
  - Hypersensitivity [Recovered/Resolved]
